FAERS Safety Report 8800201 (Version 4)
Quarter: 2013Q1

REPORT INFORMATION
  Report Type: Report from Study
  Country: MY (occurrence: MY)
  Receive Date: 20120921
  Receipt Date: 20130108
  Transmission Date: 20140127
  Serious: Yes (Hospitalization)
  Sender: FDA-Public Use
  Company Number: MY-JNJFOC-20120907182

PATIENT
  Sex: Female
  Weight: 70.5 kg

DRUGS (17)
  1. GOLIMUMAB [Suspect]
     Indication: RHEUMATOID ARTHRITIS
     Route: 042
     Dates: start: 20120622
  2. GOLIMUMAB [Suspect]
     Indication: RHEUMATOID ARTHRITIS
     Route: 042
     Dates: start: 20100723
  3. FOLATE [Concomitant]
     Indication: PROPHYLAXIS
     Route: 048
     Dates: start: 20060517
  4. OMEPRAZOLE [Concomitant]
     Indication: GASTRITIS
     Route: 048
     Dates: start: 20060718
  5. DICLOFENAC [Concomitant]
     Indication: ANALGESIC THERAPY
     Route: 061
     Dates: start: 20100406
  6. AQUEOUS [Concomitant]
     Route: 061
     Dates: start: 20110401
  7. HYPROMELLOSE [Concomitant]
     Route: 047
     Dates: start: 20110722
  8. BETAMETHASONE VALERATE [Concomitant]
     Route: 061
     Dates: start: 20110722
  9. MOMETASONE [Concomitant]
     Indication: RHINITIS ALLERGIC
     Route: 045
     Dates: start: 20110622
  10. LORATADINE [Concomitant]
     Indication: RHINITIS ALLERGIC
     Route: 048
     Dates: start: 20110622
  11. VITAMIN B1, B6, B12 [Concomitant]
     Route: 048
     Dates: start: 20120106
  12. PARACETAMOL [Concomitant]
     Route: 048
     Dates: start: 20120106
  13. CELECOXIB [Concomitant]
     Indication: ANTIINFLAMMATORY THERAPY
     Route: 048
     Dates: start: 20120105
  14. CELECOXIB [Concomitant]
     Indication: ANALGESIC THERAPY
     Route: 048
     Dates: start: 20120105
  15. MICONAZOLE NITRATE [Concomitant]
     Route: 061
     Dates: start: 20120406
  16. MICONAZOLE NITRATE [Concomitant]
     Route: 061
     Dates: start: 20120106
  17. SALICYLIC ACID [Concomitant]
     Route: 061
     Dates: start: 20120406

REACTIONS (1)
  - Urinary tract infection [Recovered/Resolved]
